FAERS Safety Report 17945422 (Version 3)
Quarter: 2021Q1

REPORT INFORMATION
  Report Type: Spontaneous
  Country: DE (occurrence: DE)
  Receive Date: 20200625
  Receipt Date: 20210105
  Transmission Date: 20210419
  Serious: Yes (Hospitalization)
  Sender: FDA-Public Use
  Company Number: NVSC2020DE175962

PATIENT
  Age: 65 Year
  Sex: Male
  Weight: 62 kg

DRUGS (8)
  1. PACLITAXEL. [Suspect]
     Active Substance: PACLITAXEL
     Dosage: 100 MG/M2 (DATE LAST DOSE TAKEN PRIOR TO EVENT ONSET 21 APR 2020)
     Route: 042
     Dates: start: 20200224
  2. ATEZOLIZUMAB. [Suspect]
     Active Substance: ATEZOLIZUMAB
     Indication: NON-SMALL CELL LUNG CANCER
     Dosage: UNK (DATE LAST DOSE TAKEN PRIOR TO EVENT ONSET 10 FEB 2020)
     Route: 042
     Dates: start: 20200210, end: 20200210
  3. CARBOPLATIN. [Suspect]
     Active Substance: CARBOPLATIN
     Dosage: UNK (6 MG/MIN ML DATE LAST DOSE TAKEN PRIOR TO EVENT ONSET: 14 APR 2020)
     Route: 042
     Dates: start: 20200224
  4. ATEZOLIZUMAB. [Suspect]
     Active Substance: ATEZOLIZUMAB
     Dosage: UNK (DATE LAST DOSE TAKEN PRIOR TO EVENT ONSET 14 APR 2020)
     Route: 042
     Dates: start: 20200224
  5. DEXAMETHASONE. [Concomitant]
     Active Substance: DEXAMETHASONE
     Indication: PRODUCT USED FOR UNKNOWN INDICATION
     Dosage: 4 MG
     Route: 048
     Dates: start: 20200210
  6. PACLITAXEL. [Suspect]
     Active Substance: PACLITAXEL
     Indication: NON-SMALL CELL LUNG CANCER
     Dosage: UNK (DATE LAST DOSE TAKEN PRIOR TO EVENT ONSET 10 FEB 2020)
     Route: 042
     Dates: start: 20200210
  7. AKYNZEO [Concomitant]
     Active Substance: NETUPITANT\PALONOSETRON HYDROCHLORIDE
     Indication: PRODUCT USED FOR UNKNOWN INDICATION
     Dosage: 300 MG
     Route: 048
     Dates: start: 20200210
  8. CARBOPLATIN. [Suspect]
     Active Substance: CARBOPLATIN
     Indication: NON-SMALL CELL LUNG CANCER
     Dosage: UNK (DATE LAST DOSE TAKEN PRIOR TO EVENT ONSET 10 FEB 2020)
     Route: 042
     Dates: start: 20200210

REACTIONS (5)
  - Constipation [Recovered/Resolved]
  - Diarrhoea [Unknown]
  - Diarrhoea [Recovered/Resolved]
  - Hyperglycaemia [Unknown]
  - Vomiting [Unknown]

NARRATIVE: CASE EVENT DATE: 20200210
